FAERS Safety Report 13499099 (Version 2)
Quarter: 2017Q2

REPORT INFORMATION
  Report Type: Spontaneous
  Country: US (occurrence: US)
  Receive Date: 20170501
  Receipt Date: 20170522
  Transmission Date: 20170830
  Serious: Yes (Life-Threatening, Hospitalization, Other)
  Sender: FDA-Public Use
  Company Number: US-CLOVIS ONCOLOGY-CLO-2017-000312

PATIENT
  Sex: Female

DRUGS (2)
  1. RUBRACA [Suspect]
     Active Substance: RUCAPARIB CAMSYLATE
     Dosage: 1000 MG, QD
     Route: 048
  2. RUBRACA [Suspect]
     Active Substance: RUCAPARIB CAMSYLATE
     Indication: OVARIAN CANCER
     Dosage: 1200 MG, QD
     Dates: start: 201703

REACTIONS (7)
  - White blood cell count decreased [Recovered/Resolved]
  - General physical health deterioration [Not Recovered/Not Resolved]
  - Lymph node abscess [Recovering/Resolving]
  - Hepatic enzyme abnormal [Unknown]
  - Lethargy [Not Recovered/Not Resolved]
  - Hepatitis [Recovering/Resolving]
  - Fatigue [Not Recovered/Not Resolved]

NARRATIVE: CASE EVENT DATE: 2017
